FAERS Safety Report 6962976-8 (Version None)
Quarter: 2010Q3

REPORT INFORMATION
  Report Type: 
  Country: None (occurrence: None)
  Receive Date: 20100831
  Receipt Date: 20100819
  Transmission Date: 20110219
  Serious: Yes (Hospitalization, Other)
  Sender: FDA-Public Use
  Company Number: DSU-2010-04259

PATIENT
  Age: 65 Year
  Sex: Male
  Weight: 92.0802 kg

DRUGS (9)
  1. BENICAR HCT [Suspect]
     Indication: HYPERTENSION
     Dosage: 20/12.5MG (QD), PER ORAL
     Route: 048
     Dates: start: 20100401
  2. NIFEDICAL XL (NIFEDIPINE) (60 MILLIGRAM)(NIFEDIPINE) [Concomitant]
  3. FUROSEMIDE (FUROSEMIDE) (40 MILLIGRAM) (FUROSEMIDE) [Concomitant]
  4. AMIODARONE (AMIODARONE) (200 MILLIGRAM) (AMIODARONE) [Concomitant]
  5. SIMVASTATIN (SIMVASTATIN) (80 MILLIGRAM) (SIMVASTATIN) [Concomitant]
  6. ALPRAZOLAM (ALPRAZOLAM) (1 MILLIGRAM) (ALPRAZOLAM) [Concomitant]
  7. OXYGEN (OXYGEN) (OXYGEN) [Concomitant]
  8. ADVAIR (FLUTICASONE PROPIONATE, SALMETEROL XINAFOATE) (FLUTICASONE PRO [Concomitant]
  9. IPRATROPIUM/ALBUTEROL(IPRATROPIUM BROMIDE, SALBUTAMOL SULFATE)(NEBULIS [Concomitant]

REACTIONS (6)
  - DEHYDRATION [None]
  - DIARRHOEA [None]
  - ERUCTATION [None]
  - HYPOTENSION [None]
  - RENAL FAILURE [None]
  - WEIGHT DECREASED [None]
